FAERS Safety Report 8138766-X (Version None)
Quarter: 2012Q1

REPORT INFORMATION
  Report Type: 
  Country: None (occurrence: None)
  Receive Date: 20120215
  Receipt Date: 20120206
  Transmission Date: 20120608
  Serious: Yes (Other)
  Sender: FDA-Public Use
  Company Number: JP-GLAXOSMITHKLINE-B0780754A

PATIENT
  Age: 38 Year
  Sex: Female

DRUGS (1)
  1. LAMICTAL [Suspect]
     Route: 048

REACTIONS (6)
  - HUMAN HERPESVIRUS 6 INFECTION [None]
  - LYMPHADENOPATHY [None]
  - GENERALISED ERYTHEMA [None]
  - DRUG RASH WITH EOSINOPHILIA AND SYSTEMIC SYMPTOMS [None]
  - PYREXIA [None]
  - EOSINOPHIL COUNT INCREASED [None]
